FAERS Safety Report 5972022-0 (Version None)
Quarter: 2008Q4

REPORT INFORMATION
  Report Type: 
  Country: None (occurrence: None)
  Receive Date: 20081125
  Receipt Date: 20081117
  Transmission Date: 20090506
  Serious: Yes (Hospitalization)
  Sender: FDA-Public Use
  Company Number: SPV1-2008-02527

PATIENT
  Sex: Female

DRUGS (1)
  1. LIALDA [Suspect]
     Dosage: ORAL
     Route: 048

REACTIONS (7)
  - AMNESIA [None]
  - ASTHENIA [None]
  - CONVULSION [None]
  - DIZZINESS [None]
  - DYSPNOEA [None]
  - HEART RATE INCREASED [None]
  - SYNCOPE [None]
